FAERS Safety Report 9196677 (Version 2)
Quarter: 2013Q3

REPORT INFORMATION
  Report Type: Spontaneous
  Country: US (occurrence: None)
  Receive Date: 20120709
  Receipt Date: 20130724
  Transmission Date: 20140515
  Serious: Yes (Other)
  Sender: FDA-Public Use
  Company Number: PHEH2012US003301

PATIENT
  Age: 69 Year
  Sex: Female
  Weight: 94.1 kg

DRUGS (12)
  1. GLEEVEC [Suspect]
     Indication: CHRONIC MYELOID LEUKAEMIA
     Route: 048
     Dates: start: 20100305, end: 201104
  2. VITAMIN D3 (COLECALCIFEROL) [Concomitant]
  3. MOXIFLOXACIN [Concomitant]
  4. POTASSIUM CHLORIDE [Concomitant]
  5. VICODIN (HYDROCODONE BITARTRATE, PARACETAMOL) [Concomitant]
  6. HYDOCHLOROTHIAZIDE [Concomitant]
  7. ALBUTEROL (SALBUTAMOL) INHALER [Concomitant]
  8. MELOXICAM [Concomitant]
  9. MULTIVITAMINS (ASCORBIC ACID, ERGOCALCIFEROL, FOLIC ACID, NICOTINAMIDE, PANTHENOL, RETINOL, RIBOFLAVIN, THIAMINE HYDROCHLORIDE) [Concomitant]
  10. VITAMIN B12 (CYANOCOBALAMIN) [Concomitant]
  11. ASCORBIC ACID [Concomitant]
  12. CYCLOBENZAPRINE [Concomitant]

REACTIONS (7)
  - Pulmonary hypertension [None]
  - Dizziness [None]
  - Weight increased [None]
  - Dyspnoea [None]
  - Oedema peripheral [None]
  - Fluid retention [None]
  - Blood pressure systolic increased [None]
